FAERS Safety Report 6664481-5 (Version None)
Quarter: 2010Q2

REPORT INFORMATION
  Report Type: 
  Country: None (occurrence: None)
  Receive Date: 20100401
  Receipt Date: 20100323
  Transmission Date: 20101027
  Serious: Yes (Death, Hospitalization, Other)
  Sender: FDA-Public Use
  Company Number: US-AMGEN-QUU401365

PATIENT
  Sex: Male

DRUGS (2)
  1. NPLATE [Suspect]
     Indication: IDIOPATHIC THROMBOCYTOPENIC PURPURA
     Dates: start: 20100209, end: 20100308
  2. IMMU-G [Concomitant]
     Dates: start: 20070616

REACTIONS (4)
  - BIOPSY BONE MARROW ABNORMAL [None]
  - BONE MARROW RETICULIN FIBROSIS [None]
  - HAEMORRHAGE INTRACRANIAL [None]
  - HOSPITALISATION [None]
